FAERS Safety Report 6233867-5 (Version None)
Quarter: 2009Q2

REPORT INFORMATION
  Report Type: 
  Country: None (occurrence: None)
  Receive Date: 20090618
  Receipt Date: 20090610
  Transmission Date: 20091009
  Serious: Yes (Hospitalization)
  Sender: FDA-Public Use
  Company Number: US-ASTRAZENECA-2009UW14897

PATIENT
  Age: 55 Year
  Sex: Female

DRUGS (8)
  1. SEROQUEL [Suspect]
     Route: 048
  2. LAMOTRIGINE [Concomitant]
     Route: 065
  3. CYTOMEL [Concomitant]
     Route: 065
  4. I-THYROXINE [Concomitant]
     Route: 065
  5. VITAMIN D [Concomitant]
     Route: 065
  6. ZINC [Concomitant]
     Route: 065
  7. FOLIC ACID [Concomitant]
     Route: 065
  8. ASPIRIN [Concomitant]
     Route: 065

REACTIONS (2)
  - COLITIS ISCHAEMIC [None]
  - PLEURAL EFFUSION [None]
